FAERS Safety Report 9698208 (Version 1)
Quarter: 2013Q4

REPORT INFORMATION
  Report Type: Spontaneous
  Country: US (occurrence: US)
  Receive Date: 20131120
  Receipt Date: 20131120
  Transmission Date: 20140711
  Serious: Yes (Life-Threatening, Hospitalization)
  Sender: FDA-Public Use
  Company Number: US-BRISTOL-MYERS SQUIBB COMPANY-19806637

PATIENT
  Age: 57 Year
  Sex: Male
  Weight: 129.25 kg

DRUGS (9)
  1. SPRYCEL (CML) TABS 100 MG [Suspect]
     Indication: CHRONIC MYELOID LEUKAEMIA
     Route: 048
     Dates: start: 20131018, end: 20131023
  2. METFORMIN [Concomitant]
  3. GLIMEPIRIDE [Concomitant]
  4. LEVOTHYROXIN [Concomitant]
  5. LISINOPRIL [Concomitant]
  6. ATENOLOL [Concomitant]
  7. CRESTOR [Concomitant]
  8. MAGNESIUM [Concomitant]
  9. OXYCODONE [Concomitant]

REACTIONS (1)
  - General physical health deterioration [Unknown]
